FAERS Safety Report 5498551-4 (Version None)
Quarter: 2007Q4

REPORT INFORMATION
  Report Type: 
  Country: None (occurrence: None)
  Receive Date: 20071026
  Receipt Date: 20071017
  Transmission Date: 20080405
  Serious: Yes (Hospitalization, Other)
  Sender: FDA-Public Use
  Company Number: FR-WYE-G00514007

PATIENT
  Age: 18 Year
  Sex: Female

DRUGS (1)
  1. MICROVAL [Suspect]
     Indication: CONTRACEPTION
     Route: 048

REACTIONS (3)
  - BLOOD CHOLESTEROL INCREASED [None]
  - DRUG INEFFECTIVE [None]
  - UNINTENDED PREGNANCY [None]
